FAERS Safety Report 4902263-2 (Version None)
Quarter: 2006Q1

REPORT INFORMATION
  Report Type: 
  Country: None (occurrence: None)
  Receive Date: 20060207
  Receipt Date: 20050923
  Transmission Date: 20060701
  Serious: Yes (Hospitalization)
  Sender: FDA-Public Use
  Company Number: DE-MERCK-0509DEU00147

PATIENT
  Age: 60 Year
  Sex: Female

DRUGS (4)
  1. COZAAR [Suspect]
     Indication: HYPERTENSION
     Route: 048
     Dates: start: 20050315, end: 20051001
  2. PHENPROCOUMON [Concomitant]
     Route: 065
     Dates: start: 20030101
  3. LEVOTHYROXINE SODIUM [Concomitant]
     Route: 048
  4. PANTOPRAZOLE SODIUM [Concomitant]
     Route: 065

REACTIONS (22)
  - ABDOMINAL DISCOMFORT [None]
  - ABDOMINAL DISTENSION [None]
  - ADVERSE EVENT [None]
  - ANOREXIA [None]
  - BLOOD LACTATE DEHYDROGENASE INCREASED [None]
  - BLOOD PRESSURE INCREASED [None]
  - CHEST DISCOMFORT [None]
  - DIZZINESS [None]
  - DYSGEUSIA [None]
  - DYSPNOEA [None]
  - ELECTROCARDIOGRAM Q WAVES [None]
  - ERUCTATION [None]
  - FATIGUE [None]
  - FLATULENCE [None]
  - HAEMORRHAGE [None]
  - HIATUS HERNIA [None]
  - ISCHAEMIA [None]
  - LIVER FUNCTION TEST ABNORMAL [None]
  - NAUSEA [None]
  - PANCREATIC DISORDER [None]
  - SCAR [None]
  - WEIGHT DECREASED [None]
